FAERS Safety Report 5593631-7 (Version None)
Quarter: 2007Q4

REPORT INFORMATION
  Report Type: 
  Country: None (occurrence: None)
  Receive Date: 20071218
  Receipt Date: 20061109
  Transmission Date: 20080405
  Serious: Yes (Hospitalization)
  Sender: FDA-Public Use
  Company Number: 2006142766

PATIENT
  Age: 51 Year
  Sex: Male
  Weight: 98.4 kg

DRUGS (1)
  1. BEXTRA [Suspect]
     Indication: ARTHRITIS
     Dosage: 20 MG (20 MG, 1 IN 1 D)
     Dates: start: 20030501, end: 20040629

REACTIONS (2)
  - ANXIETY [None]
  - MYOCARDIAL INFARCTION [None]
